FAERS Safety Report 5269166-8 (Version None)
Quarter: 2007Q1

REPORT INFORMATION
  Report Type: 
  Country: None (occurrence: None)
  Receive Date: 20070319
  Receipt Date: 20070313
  Transmission Date: 20070707
  Serious: Yes (Other)
  Sender: FDA-Public Use
  Company Number: GB-ROXANE LABORATORIES, INC-2007-BP-03494RO

PATIENT
  Age: 60 Year
  Sex: Female

DRUGS (2)
  1. LITHIUM CARBONATE [Suspect]
     Indication: BIPOLAR DISORDER
     Route: 048
  2. CHLORTHALIDONE [Suspect]
     Indication: NEPHROGENIC DIABETES INSIPIDUS
     Route: 048

REACTIONS (7)
  - DIABETES MELLITUS NON-INSULIN-DEPENDENT [None]
  - HYPERCALCAEMIA [None]
  - HYPERPARATHYROIDISM [None]
  - HYPERPLASIA [None]
  - NEPHROGENIC DIABETES INSIPIDUS [None]
  - POLYDIPSIA [None]
  - POLYURIA [None]
